FAERS Safety Report 9909560 (Version 1)
Quarter: 2014Q1

REPORT INFORMATION
  Report Type: Spontaneous
  Country: NL (occurrence: NL)
  Receive Date: 20140219
  Receipt Date: 20140219
  Transmission Date: 20141002
  Serious: Yes (Life-Threatening)
  Sender: FDA-Public Use
  Company Number: NL-PFIZER INC-2014045758

PATIENT
  Age: 24 Year
  Sex: Female
  Weight: 65 kg

DRUGS (1)
  1. ETHINYLESTRADIOL/LEVONORGESTREL [Suspect]
     Indication: CONTRACEPTION
     Dosage: 7 TIMES A WEEK, WITH A STOPWEEK PER 4 WEEKS
     Dates: start: 2007, end: 201306

REACTIONS (1)
  - Insomnia [Recovered/Resolved]
